FAERS Safety Report 7647281-9 (Version None)
Quarter: 2011Q3

REPORT INFORMATION
  Report Type: 
  Country: None (occurrence: None)
  Receive Date: 20110801
  Receipt Date: 20110722
  Transmission Date: 20111222
  Serious: Yes (Other)
  Sender: FDA-Public Use
  Company Number: FI-ROCHE-783450

PATIENT
  Sex: Female

DRUGS (3)
  1. MIRCERA [Suspect]
     Route: 065
  2. MIRCERA [Suspect]
     Route: 065
     Dates: start: 20101201
  3. MIRCERA [Suspect]
     Route: 065

REACTIONS (2)
  - DRUG INEFFECTIVE [None]
  - MYELODYSPLASTIC SYNDROME [None]
